FAERS Safety Report 9731725 (Version 1)
Quarter: 2013Q4

REPORT INFORMATION
  Report Type: Spontaneous
  Country: US (occurrence: US)
  Receive Date: 20131205
  Receipt Date: 20131205
  Transmission Date: 20140711
  Serious: Yes (Hospitalization)
  Sender: FDA-Public Use
  Company Number: US-ASTRAZENECA-2013SE87263

PATIENT
  Age: 64 Year
  Sex: Female
  Weight: 134.3 kg

DRUGS (4)
  1. NEXIUM [Suspect]
     Indication: GASTROOESOPHAGEAL REFLUX DISEASE
     Route: 048
     Dates: start: 2012
  2. NEXIUM [Suspect]
     Indication: GASTROOESOPHAGEAL REFLUX DISEASE
     Route: 048
  3. OMEPRAZOLE [Suspect]
     Indication: GASTROOESOPHAGEAL REFLUX DISEASE
     Route: 048
     Dates: start: 2012
  4. ALLERGY SHOTS [Concomitant]
     Indication: MULTIPLE ALLERGIES
     Dosage: WEEK
     Dates: start: 201310

REACTIONS (3)
  - Adverse event [Unknown]
  - Chest pain [Unknown]
  - Intentional drug misuse [Unknown]
